FAERS Safety Report 25907934 (Version 2)
Quarter: 2025Q4

REPORT INFORMATION
  Report Type: Spontaneous
  Country: US (occurrence: US)
  Receive Date: 20251010
  Receipt Date: 20251110
  Transmission Date: 20260117
  Serious: No
  Sender: PFIZER
  Company Number: US-PFIZER INC-202500198988

PATIENT
  Age: 70 Year
  Sex: Male

DRUGS (7)
  1. GENOTROPIN [Suspect]
     Active Substance: SOMATROPIN
     Indication: Blood growth hormone abnormal
     Dosage: 0.8MG INJECTION UNDER THE SKIN ONE TIME A DAY
     Route: 058
     Dates: start: 202510
  2. GENOTROPIN [Suspect]
     Active Substance: SOMATROPIN
     Indication: Hormone replacement therapy
  3. GENOTROPIN [Suspect]
     Active Substance: SOMATROPIN
     Indication: Hypopituitarism
  4. GENOTROPIN [Suspect]
     Active Substance: SOMATROPIN
     Indication: Hypophysectomy
  5. PREDNISONE [Concomitant]
     Active Substance: PREDNISONE
     Dosage: 5 MG, DAILY
     Route: 048
     Dates: start: 1969
  6. SYNTHROID [Concomitant]
     Active Substance: LEVOTHYROXINE SODIUM
     Dosage: 200 UG, DAILY
     Route: 048
     Dates: start: 1969
  7. TESTOSTERONE [Concomitant]
     Active Substance: TESTOSTERONE
     Dosage: 0.8 INJECTION INTO THIGH EVERY DAY
     Dates: start: 1969

REACTIONS (4)
  - Feeling abnormal [Recovered/Resolved]
  - Blood pressure decreased [Recovered/Resolved]
  - Erythema [Recovered/Resolved]
  - Feeling hot [Unknown]

NARRATIVE: CASE EVENT DATE: 20251001
